FAERS Safety Report 21134494 (Version 1)
Quarter: 2022Q3

REPORT INFORMATION
  Report Type: Report from Study
  Country: FR (occurrence: FR)
  Receive Date: 20220726
  Receipt Date: 20220726
  Transmission Date: 20221027
  Serious: Yes (Other)
  Sender: FDA-Public Use
  Company Number: FR-JNJFOC-20220741191

PATIENT

DRUGS (7)
  1. STELARA [Suspect]
     Active Substance: USTEKINUMAB
     Indication: Colitis ulcerative
     Dosage: WEEK 0 AS INDUCTION THERAPY AND THEN EVERY 48 WEEKS AS MAINTENANCE THERAPY
     Route: 040
     Dates: start: 201901
  2. STELARA [Suspect]
     Active Substance: USTEKINUMAB
     Route: 040
     Dates: start: 201909
  3. STELARA [Suspect]
     Active Substance: USTEKINUMAB
     Route: 058
  4. VEDOLIZUMAB [Suspect]
     Active Substance: VEDOLIZUMAB
     Indication: Colitis ulcerative
     Route: 041
     Dates: start: 201406
  5. VEDOLIZUMAB [Suspect]
     Active Substance: VEDOLIZUMAB
     Route: 041
     Dates: start: 201412
  6. VEDOLIZUMAB [Suspect]
     Active Substance: VEDOLIZUMAB
     Dosage: 2 AND 6 AS INDUCTION THERAPY AND THEN EVERY 48 WEEKS AS MAINTENANCE THERAPY
     Route: 041
     Dates: start: 2022
  7. METHOTREXATE [Concomitant]
     Active Substance: METHOTREXATE

REACTIONS (3)
  - Adverse event [Unknown]
  - Infection [Unknown]
  - Off label use [Unknown]
